FAERS Safety Report 16367553 (Version 4)
Quarter: 2020Q4

REPORT INFORMATION
  Report Type: Spontaneous
  Country: US (occurrence: US)
  Receive Date: 20190529
  Receipt Date: 20201028
  Transmission Date: 20210113
  Serious: No
  Sender: FDA-Public Use
  Company Number: US-PFIZER INC-2019055872

PATIENT
  Age: 55 Year
  Sex: Male

DRUGS (1)
  1. RAPAMUNE [Suspect]
     Active Substance: SIROLIMUS
     Indication: LIVER TRANSPLANT
     Dosage: 2 MG, DAILY (2 TABS BY MOUTH DAILY)
     Route: 048

REACTIONS (3)
  - Off label use [Unknown]
  - Confusional state [Unknown]
  - Product use in unapproved indication [Unknown]
